FAERS Safety Report 4795883-X (Version None)
Quarter: 2005Q4

REPORT INFORMATION
  Report Type: 
  Country: None (occurrence: None)
  Receive Date: 20051012
  Receipt Date: 20051003
  Transmission Date: 20060501
  Serious: Yes (Other)
  Sender: FDA-Public Use
  Company Number: GB-ABBOTT-05P-167-0312917-00

PATIENT
  Age: 34 Year
  Sex: Male

DRUGS (4)
  1. CLARITHROMYCIN [Suspect]
     Indication: ATYPICAL MYCOBACTERIAL INFECTION
     Route: 048
     Dates: start: 20050523
  2. INSULIN [Concomitant]
     Indication: DIABETES MELLITUS
     Route: 058
  3. RAMIPRIL [Concomitant]
     Indication: HYPERTENSION
     Route: 048
     Dates: start: 20040101
  4. CLAVULIN [Concomitant]
     Indication: ABSCESS
     Route: 048
     Dates: start: 20040401

REACTIONS (1)
  - DECREASED INSULIN REQUIREMENT [None]
